FAERS Safety Report 21103118 (Version 6)
Quarter: 2022Q4

REPORT INFORMATION
  Report Type: Report from Study
  Country: GB (occurrence: GB)
  Receive Date: 20220720
  Receipt Date: 20221115
  Transmission Date: 20230113
  Serious: Yes (Other)
  Sender: FDA-Public Use
  Company Number: GB-ALNYLAM PHARMACEUTICALS, INC.-ALN-2022-001016

PATIENT

DRUGS (16)
  1. VUTRISIRAN SODIUM [Suspect]
     Active Substance: VUTRISIRAN SODIUM
     Indication: Cardiac amyloidosis
     Dosage: 25 MILLIGRAM, EVERY 3 MONTHS
     Route: 058
     Dates: start: 20210127
  2. VUTRISIRAN SODIUM [Suspect]
     Active Substance: VUTRISIRAN SODIUM
     Dosage: 25 MILLIGRAM, EVERY 3 MONTHS
     Route: 058
     Dates: start: 20211222
  3. VUTRISIRAN SODIUM [Suspect]
     Active Substance: VUTRISIRAN SODIUM
     Dosage: 25 MILLIGRAM, EVERY 3 MONTHS
     Route: 058
     Dates: start: 20220316
  4. VITAMIN A [Concomitant]
     Active Substance: VITAMIN A
     Indication: Prophylaxis
     Dosage: 800 MICROGRAM, QD
     Route: 048
     Dates: start: 20210127
  5. ALLOPURINOL [Concomitant]
     Active Substance: ALLOPURINOL
     Indication: Gout
     Dosage: 300 MILLIGRAM, QD
     Route: 048
     Dates: start: 2009
  6. METFORMIN [Concomitant]
     Active Substance: METFORMIN HYDROCHLORIDE
     Indication: Type 2 diabetes mellitus
     Dosage: 500 MILLIGRAM, BID
     Route: 048
     Dates: start: 2011
  7. FUROSEMIDE [Concomitant]
     Active Substance: FUROSEMIDE
     Indication: Cardiac disorder
     Dosage: 20 MILLIGRAM, QD
     Route: 048
     Dates: start: 2020, end: 20220210
  8. ACETAMINOPHEN [Concomitant]
     Active Substance: ACETAMINOPHEN
     Indication: Spinal osteoarthritis
     Dosage: 1 GRAM, PRN
     Route: 048
     Dates: start: 201307
  9. COD LIVER OIL [Concomitant]
     Active Substance: COD LIVER OIL
     Indication: Prophylaxis
     Dosage: 1 DOSAGE FORM, QD
     Route: 048
     Dates: start: 2010
  10. GUAIFENESIN [Concomitant]
     Active Substance: GUAIFENESIN
     Indication: Catarrh
     Dosage: 5 MILLILITER, PRN
     Route: 048
     Dates: start: 20210224
  11. LATANOPROST [Concomitant]
     Active Substance: LATANOPROST
     Indication: Glaucoma
     Dosage: 50 MICROGRAM/ML, QD
     Route: 061
     Dates: start: 20210308
  12. CYANOCOBALAMIN\FOLIC ACID [Concomitant]
     Active Substance: CYANOCOBALAMIN\FOLIC ACID
     Indication: Vitamin B12 deficiency
     Dosage: 1500 MICROGRAM, QD
     Route: 048
     Dates: start: 202107
  13. BUMETANIDE [Concomitant]
     Active Substance: BUMETANIDE
     Indication: Cardiac disorder
     Dosage: 0.5 MILLIGRAM, QD
     Route: 048
     Dates: start: 20220211
  14. BUMETANIDE [Concomitant]
     Active Substance: BUMETANIDE
     Dosage: 1 MILLIGRAM, BID
     Route: 048
  15. APIXABAN [Concomitant]
     Active Substance: APIXABAN
     Indication: Anticoagulant therapy
     Dosage: 5 MILLIGRAM, BID
     Route: 048
     Dates: start: 20220210
  16. APIXABAN [Concomitant]
     Active Substance: APIXABAN
     Indication: Atrial fibrillation

REACTIONS (1)
  - Haematuria [Recovered/Resolved]

NARRATIVE: CASE EVENT DATE: 20220127
